FAERS Safety Report 11194997 (Version 1)
Quarter: 2015Q2

REPORT INFORMATION
  Report Type: Report from Study
  Country: US (occurrence: None)
  Receive Date: 20150603
  Receipt Date: 20150603
  Transmission Date: 20150821
  Serious: No
  Sender: FDA-Public Use
  Company Number: 2014TASUS000537

PATIENT
  Age: 51 Year
  Sex: Female

DRUGS (2)
  1. LEVOTHYROXINE SODIUM. [Concomitant]
     Active Substance: LEVOTHYROXINE SODIUM
  2. HETLIOZ [Suspect]
     Active Substance: TASIMELTEON
     Indication: CIRCADIAN RHYTHM SLEEP DISORDER
     Route: 048
     Dates: start: 20141001

REACTIONS (5)
  - Abdominal discomfort [None]
  - Nausea [None]
  - Diarrhoea [None]
  - Constipation [None]
  - Headache [None]

NARRATIVE: CASE EVENT DATE: 201410
